FAERS Safety Report 11080097 (Version 1)
Quarter: 2015Q2

REPORT INFORMATION
  Report Type: Spontaneous
  Country: DK (occurrence: DK)
  Receive Date: 20150430
  Receipt Date: 20150430
  Transmission Date: 20150821
  Serious: Yes (Hospitalization)
  Sender: FDA-Public Use
  Company Number: PHHY2015DK047989

PATIENT
  Age: 22 Year
  Sex: Female

DRUGS (1)
  1. MALONETTA [Suspect]
     Active Substance: ETHINYL ESTRADIOL\LEVONORGESTREL
     Indication: CONTRACEPTION
     Dosage: 1 DF, UNK,STRENGTH: 0.15 + 0.03 MG
     Route: 048
     Dates: start: 2005, end: 20071012

REACTIONS (5)
  - Joint lock [Unknown]
  - Pain in jaw [Unknown]
  - Mastication disorder [Unknown]
  - Temporomandibular joint surgery [Unknown]
  - Joint dislocation [Unknown]

NARRATIVE: CASE EVENT DATE: 2007
